FAERS Safety Report 6005041-9 (Version None)
Quarter: 2008Q4

REPORT INFORMATION
  Report Type: 
  Country: None (occurrence: None)
  Receive Date: 20081216
  Receipt Date: 20071219
  Transmission Date: 20090506
  Serious: No
  Sender: FDA-Public Use
  Company Number: US-BAUSCH-2007BL004579

PATIENT
  Age: 77 Year
  Sex: Female

DRUGS (1)
  1. SULFACETAMIDE SODIUM [Suspect]
     Indication: EYE INFECTION
     Route: 047
     Dates: start: 20071217

REACTIONS (2)
  - CONDITION AGGRAVATED [None]
  - EYE DISCHARGE [None]
